FAERS Safety Report 9861059 (Version 1)
Quarter: 2014Q1

REPORT INFORMATION
  Report Type: Spontaneous
  Country: US (occurrence: US)
  Receive Date: 20140202
  Receipt Date: 20140202
  Transmission Date: 20141002
  Serious: No
  Sender: FDA-Public Use
  Company Number: US-ALLERGAN-1303287US

PATIENT
  Age: 51 Year
  Sex: Female

DRUGS (8)
  1. BOTOX [Suspect]
     Indication: FACIAL SPASM
     Dosage: 40 UNITS, SINGLE
     Dates: start: 20130114, end: 20130114
  2. COZAAR [Concomitant]
     Indication: PRODUCT USED FOR UNKNOWN INDICATION
  3. HCTZ [Concomitant]
     Indication: PRODUCT USED FOR UNKNOWN INDICATION
  4. KLONOPIN [Concomitant]
     Indication: PRODUCT USED FOR UNKNOWN INDICATION
  5. BABY ASA [Concomitant]
     Indication: PRODUCT USED FOR UNKNOWN INDICATION
  6. MULTIVITAMIN                       /00097801/ [Concomitant]
     Indication: PRODUCT USED FOR UNKNOWN INDICATION
  7. MULTIVITAMIN                       /00097801/ [Concomitant]
     Dosage: 30 UNITS, SINGLE
     Route: 030
  8. MULTIVITAMIN                       /00097801/ [Concomitant]
     Dosage: 30 UNITS, SINGLE
     Route: 030

REACTIONS (4)
  - Tinnitus [Unknown]
  - Ear pain [Unknown]
  - Sinus congestion [Unknown]
  - Therapeutic response decreased [Unknown]
